FAERS Safety Report 8600791-X (Version None)
Quarter: 2012Q3

REPORT INFORMATION
  Report Type: 
  Country: None (occurrence: None)
  Receive Date: 20120806
  Receipt Date: 20120719
  Transmission Date: 20120928
  Serious: Yes (Hospitalization)
  Sender: FDA-Public Use
  Company Number: TPG2012A01351

PATIENT
  Age: 53 Year
  Sex: Female

DRUGS (1)
  1. LANSOPRAZOLE [Suspect]
     Indication: GASTROOESOPHAGEAL REFLUX DISEASE
     Dosage: DAILY PER ORAL
     Route: 048

REACTIONS (4)
  - FOOT FRACTURE [None]
  - OSTEOPOROSIS [None]
  - LOWER LIMB FRACTURE [None]
  - FEMORAL NECK FRACTURE [None]
